FAERS Safety Report 15426212 (Version 2)
Quarter: 2018Q4

REPORT INFORMATION
  Report Type: Spontaneous
  Country: FR (occurrence: FR)
  Receive Date: 20180925
  Receipt Date: 20181005
  Transmission Date: 20190204
  Serious: Yes (Hospitalization)
  Sender: FDA-Public Use
  Company Number: FR-ASTRAZENECA-2018SF22742

PATIENT
  Sex: Male

DRUGS (2)
  1. MOPRAL [Suspect]
     Active Substance: OMEPRAZOLE
     Dosage: UNKNOWN DOSE, DAILY
     Route: 048
  2. MOPRAL [Suspect]
     Active Substance: OMEPRAZOLE
     Route: 048
     Dates: start: 201809, end: 20180918

REACTIONS (4)
  - Gastric disorder [Unknown]
  - Therapy cessation [Unknown]
  - Neoplasm malignant [Unknown]
  - Urinary tract infection [Unknown]

NARRATIVE: CASE EVENT DATE: 20180917
